FAERS Safety Report 18855314 (Version 4)
Quarter: 2021Q1

REPORT INFORMATION
  Report Type: Report from Study
  Country: CA (occurrence: CA)
  Receive Date: 20210205
  Receipt Date: 20210301
  Transmission Date: 20210420
  Serious: Yes (Hospitalization, Other)
  Sender: FDA-Public Use
  Company Number: CA-BRISTOL-MYERS SQUIBB COMPANY-BMS-2021-010189

PATIENT
  Sex: Female

DRUGS (5)
  1. MTX [METHOTREXATE] [Suspect]
     Active Substance: METHOTREXATE SODIUM
     Indication: PRODUCT USED FOR UNKNOWN INDICATION
     Dosage: 15 MILLIGRAM
     Route: 058
  2. LEUCOVORIN [FOLINIC ACID] [Concomitant]
     Active Substance: LEUCOVORIN
     Indication: PRODUCT USED FOR UNKNOWN INDICATION
     Dosage: 2 CO 5 MG
     Route: 065
  3. ABATACEPT [Suspect]
     Active Substance: ABATACEPT
     Indication: RHEUMATOID ARTHRITIS
     Dosage: 125 MG/ML, QWK
     Route: 058
     Dates: start: 20200212
  4. VIT D [COLECALCIFEROL] [Concomitant]
     Indication: PRODUCT USED FOR UNKNOWN INDICATION
     Route: 065
  5. SYNTHROID [Concomitant]
     Active Substance: LEVOTHYROXINE SODIUM
     Indication: PRODUCT USED FOR UNKNOWN INDICATION
     Route: 065

REACTIONS (10)
  - Condition aggravated [Unknown]
  - Sinusitis [Recovered/Resolved]
  - Chest pain [Unknown]
  - Dizziness [Unknown]
  - Dyspepsia [Unknown]
  - Pneumonia [Recovered/Resolved]
  - Dyspnoea [Unknown]
  - Headache [Unknown]
  - Nausea [Unknown]
  - Chills [Unknown]
